FAERS Safety Report 14422731 (Version 1)
Quarter: 2018Q1

REPORT INFORMATION
  Report Type: Spontaneous
  Country: JP (occurrence: JP)
  Receive Date: 20180123
  Receipt Date: 20180123
  Transmission Date: 20180509
  Serious: Yes (Other)
  Sender: FDA-Public Use
  Company Number: JP-SUN PHARMACEUTICAL INDUSTRIES LTD-2018R3-160652

PATIENT
  Sex: Female

DRUGS (4)
  1. ALDOMET [Suspect]
     Active Substance: METHYLDOPA
     Indication: GESTATIONAL HYPERTENSION
     Dosage: 250 MG, BID
     Route: 048
     Dates: start: 20150901, end: 20150902
  2. APRESOLINE HYDROCHLORIDE [Suspect]
     Active Substance: HYDRALAZINE HYDROCHLORIDE
     Indication: GESTATIONAL HYPERTENSION
     Dosage: 10 MG, TID
     Route: 048
     Dates: start: 20150728, end: 20150902
  3. PREDNISOLONE. [Suspect]
     Active Substance: PREDNISOLONE
     Indication: MYASTHENIA GRAVIS
     Dosage: 10 MG, QD
     Route: 048
     Dates: start: 20150902
  4. UTEMERIN TAB [Suspect]
     Active Substance: RITODRINE HYDROCHLORIDE
     Indication: PRODUCT USED FOR UNKNOWN INDICATION
     Dosage: 5 MG, TID
     Route: 048
     Dates: start: 20150729, end: 20150902

REACTIONS (6)
  - Drug effect incomplete [Unknown]
  - Respiratory failure [None]
  - Premature baby [Unknown]
  - Caesarean section [None]
  - Premature delivery [None]
  - Exposure during pregnancy [Unknown]
